FAERS Safety Report 24023518 (Version 4)
Quarter: 2024Q2

REPORT INFORMATION
  Report Type: Report from Study
  Country: VN (occurrence: VN)
  Receive Date: 20240627
  Receipt Date: 20240628
  Transmission Date: 20240716
  Serious: No
  Sender: FDA-Public Use
  Company Number: VN-ROCHE-3282879

PATIENT
  Age: 58 Year
  Sex: Male
  Weight: 60.0 kg

DRUGS (6)
  1. ALECTINIB [Suspect]
     Active Substance: ALECTINIB
     Indication: Non-small cell lung cancer metastatic
     Route: 048
     Dates: start: 20221228
  2. DEXTROSE [Concomitant]
     Active Substance: DEXTROSE\DEXTROSE MONOHYDRATE
     Indication: Appendicitis
     Dosage: FREQUENCY TEXT:PRN
     Route: 042
     Dates: start: 202307, end: 202307
  3. LACTATED RINGERS SOLUTION [Concomitant]
     Active Substance: CALCIUM CHLORIDE\POTASSIUM CHLORIDE\SODIUM CHLORIDE\SODIUM LACTATE
     Indication: Appendicitis
     Dosage: FREQUENCY TEXT:PRN
     Route: 042
     Dates: start: 202307, end: 202307
  4. METRONIDAZOLE [Concomitant]
     Active Substance: METRONIDAZOLE
     Indication: Appendicitis
     Dosage: FREQUENCY TEXT:PRN
     Route: 048
     Dates: start: 202307, end: 202307
  5. ACETAMINOPHEN [Concomitant]
     Active Substance: ACETAMINOPHEN
     Indication: Appendicitis
     Dosage: 10MG/1ML? FREQUENCY TEXT:PRN
     Route: 048
     Dates: start: 202307, end: 202307
  6. DISTILLED WATER [Concomitant]
     Indication: Appendicitis
     Dosage: FREQUENCY TEXT:PRN
     Route: 042
     Dates: start: 202307, end: 202307

REACTIONS (2)
  - Hepatic enzyme increased [Recovered/Resolved]
  - Anaemia [Recovered/Resolved]

NARRATIVE: CASE EVENT DATE: 20230127
